FAERS Safety Report 9215949 (Version 2)
Quarter: 2013Q2

REPORT INFORMATION
  Report Type: Spontaneous
  Country: US (occurrence: None)
  Receive Date: 20130403
  Receipt Date: 20130411
  Transmission Date: 20140414
  Serious: Yes (Death)
  Sender: FDA-Public Use
  Company Number: 2013CT000022

PATIENT
  Age: 63 Year
  Sex: Female

DRUGS (1)
  1. KORLYM (MIFEPRISONE) (300 MG) [Suspect]
     Indication: CUSHING^S SYNDROME
     Route: 048
     Dates: end: 2013

REACTIONS (1)
  - Death [None]
